FAERS Safety Report 17542084 (Version 1)
Quarter: 2020Q1

REPORT INFORMATION
  Report Type: Spontaneous
  Country: US (occurrence: US)
  Receive Date: 20200314
  Receipt Date: 20200314
  Transmission Date: 20200409
  Serious: No
  Sender: FDA-Public Use
  Company Number: US-LEO PHARMA-328633

PATIENT
  Age: 39 Year
  Sex: Female

DRUGS (1)
  1. PICATO [Suspect]
     Active Substance: INGENOL MEBUTATE
     Indication: ACTINIC KERATOSIS
     Dosage: APPLY THIN FILM TO SPOTS ON FACE AT NIGHT FOR 3 NIGHTS. AVOID SUN EXPOSURE FOR 1 WEEK FOR ACTINIC KE
     Route: 061

REACTIONS (9)
  - Product storage error [Unknown]
  - Application site pain [Not Recovered/Not Resolved]
  - Application site discharge [Not Recovered/Not Resolved]
  - Application site erythema [Not Recovered/Not Resolved]
  - Application site swelling [Not Recovered/Not Resolved]
  - Initial insomnia [Not Recovered/Not Resolved]
  - Application site scab [Not Recovered/Not Resolved]
  - Application site vesicles [Not Recovered/Not Resolved]
  - Application site pustules [Not Recovered/Not Resolved]
